FAERS Safety Report 5926551-6 (Version None)
Quarter: 2008Q4

REPORT INFORMATION
  Report Type: 
  Country: None (occurrence: None)
  Receive Date: 20081022
  Receipt Date: 20081020
  Transmission Date: 20090506
  Serious: Yes (Other)
  Sender: FDA-Public Use
  Company Number: JP-BRISTOL-MYERS SQUIBB COMPANY-14376677

PATIENT
  Age: 60 Year
  Sex: Male

DRUGS (2)
  1. CISPLATIN [Suspect]
     Indication: GASTRIC CANCER
     Dosage: ON DAYS 1 AND 8.
  2. S-1 [Suspect]
     Indication: GASTRIC CANCER
     Dosage: 3 WEEKS ADMINISTRATION FOLLOWED BY A 2-WEEK BREAK

REACTIONS (2)
  - CHEILITIS [None]
  - STOMATITIS [None]
